FAERS Safety Report 8117818-4 (Version None)
Quarter: 2011Q4

REPORT INFORMATION
  Report Type: 
  Country: None (occurrence: None)
  Receive Date: 20111227
  Receipt Date: 20111004
  Transmission Date: 20120403
  Serious: No
  Sender: FDA-Public Use
  Company Number: PHHY2011US69197

PATIENT
  Age: 49 Year
  Sex: Female

DRUGS (2)
  1. GILENYA [Suspect]
     Indication: MULTIPLE SCLEROSIS
     Dosage: 0.5 MG, QD, ORAL, 0.5 MG, QD, ORAL
     Route: 048
     Dates: start: 20110914
  2. GILENYA [Suspect]
     Indication: MULTIPLE SCLEROSIS
     Dosage: 0.5 MG, QD, ORAL, 0.5 MG, QD, ORAL
     Route: 048
     Dates: start: 20110719

REACTIONS (4)
  - ASTHENIA [None]
  - TOOTH DISORDER [None]
  - PAIN [None]
  - INFLUENZA LIKE ILLNESS [None]
